FAERS Safety Report 9703953 (Version 2)
Quarter: 2014Q1

REPORT INFORMATION
  Report Type: Spontaneous
  Country: DE (occurrence: DE)
  Receive Date: 20131122
  Receipt Date: 20140214
  Transmission Date: 20141002
  Serious: Yes (Other)
  Sender: FDA-Public Use
  Company Number: DE-BAYER-2013-140762

PATIENT
  Sex: Female
  Weight: 93 kg

DRUGS (1)
  1. CIPROBAY [Suspect]
     Indication: BRONCHITIS
     Dosage: 250 MG, BID
     Dates: start: 20130923, end: 20130925

REACTIONS (5)
  - Skin necrosis [Recovering/Resolving]
  - Skin ulcer [Recovering/Resolving]
  - Type IV hypersensitivity reaction [None]
  - Dry skin [Recovering/Resolving]
  - Rash generalised [Recovering/Resolving]
